FAERS Safety Report 10149810 (Version 1)
Quarter: 2014Q2

REPORT INFORMATION
  Report Type: Report from Study
  Country: DE (occurrence: DE)
  Receive Date: 20140502
  Receipt Date: 20140502
  Transmission Date: 20141212
  Serious: Yes (Other)
  Sender: FDA-Public Use
  Company Number: DE-SA-2014SA054694

PATIENT
  Sex: Male

DRUGS (6)
  1. PREDNISOLONE [Suspect]
     Indication: PROSTATE CANCER
     Dosage: DRUG STARTED ON DAY 9
     Route: 048
  2. BICALUTAMIDE [Suspect]
     Indication: PROSTATE CANCER
     Route: 048
  3. BUSERELIN ACETATE [Suspect]
     Indication: PROSTATE CANCER
     Dosage: RECEIVED ON DAY 3 EVERY 3 MONTHS
     Route: 058
  4. DOCETAXEL [Suspect]
     Indication: PROSTATE CANCER
     Dosage: RECEIVED ON DAY 8
     Route: 065
  5. DEXAMETHASONE [Concomitant]
     Dosage: ADMINISTERED 12 HOURS BEFORE AND AFTER DOCETAXEL AS WELL AS 60MIN BEFORE.
     Route: 048
  6. THERAPEUTIC RADIOPHARMACEUTICALS [Concomitant]

REACTIONS (1)
  - Bladder cancer [Unknown]
